FAERS Safety Report 26144798 (Version 1)
Quarter: 2025Q4

REPORT INFORMATION
  Report Type: Spontaneous
  Country: US (occurrence: None)
  Receive Date: 20251210
  Receipt Date: 20251210
  Transmission Date: 20260117
  Serious: Yes (Death)
  Sender: FDA-CTU
  Company Number: None

PATIENT
  Age: 65 Year
  Sex: Female

DRUGS (22)
  1. PIRFENIDONE [Suspect]
     Active Substance: PIRFENIDONE
     Indication: Interstitial lung disease
     Dosage: 801MG QD ORAL
     Route: 048
     Dates: start: 20250319, end: 20251206
  2. BUSPIRONE [Concomitant]
     Active Substance: BUSPIRONE HYDROCHLORIDE
  3. HYDROXYZINE [Concomitant]
     Active Substance: HYDROXYZINE HYDROCHLORIDE
  4. HYDRALAZINE [Concomitant]
     Active Substance: HYDRALAZINE HYDROCHLORIDE
  5. ESCITALOPRAM [Concomitant]
     Active Substance: ESCITALOPRAM OXALATE
  6. PREDNISONE [Concomitant]
     Active Substance: PREDNISONE
  7. EZETIMIBE [Concomitant]
     Active Substance: EZETIMIBE
  8. FLONASE [Concomitant]
     Active Substance: FLUTICASONE PROPIONATE
  9. LOSARTAN [Concomitant]
     Active Substance: LOSARTAN
  10. ALBUTEROL [Concomitant]
     Active Substance: ALBUTEROL
  11. VITAMIN B COMPLEX [Concomitant]
     Active Substance: CYANOCOBALAMIN\DEXPANTHENOL\NIACINAMIDE\PYRIDOXINE HYDROCHLORIDE\RIBOFLAVIN 5^-PHOSPHATE SODIUM\THIA
  12. FISH OIL [Concomitant]
     Active Substance: FISH OIL
  13. NIACIN [Concomitant]
     Active Substance: NIACIN
  14. CALCIUM CARBONATE\CHOLECALCIFEROL [Concomitant]
     Active Substance: CALCIUM CARBONATE\CHOLECALCIFEROL
  15. cholecalciferol-soy isoflavone [Concomitant]
  16. BIOTIN [Concomitant]
     Active Substance: BIOTIN
  17. OMEPRAZOLE [Concomitant]
     Active Substance: OMEPRAZOLE
  18. ASPIRIN [Concomitant]
     Active Substance: ASPIRIN
  19. METOPROLOL [Concomitant]
     Active Substance: METOPROLOL
  20. ROSUVASTATIN [Concomitant]
     Active Substance: ROSUVASTATIN
  21. efudex top cream [Concomitant]
  22. clobetasol top oint [Concomitant]

REACTIONS (3)
  - Dyspnoea [None]
  - Oxygen saturation decreased [None]
  - General physical health deterioration [None]

NARRATIVE: CASE EVENT DATE: 20251206
